FAERS Safety Report 24840293 (Version 2)
Quarter: 2025Q3

REPORT INFORMATION
  Report Type: Spontaneous
  Country: GB (occurrence: GB)
  Receive Date: 20250114
  Receipt Date: 20250803
  Transmission Date: 20251020
  Serious: Yes (Other)
  Sender: ALEXION PHARMACEUTICALS
  Company Number: GB-AstraZeneca-CH-00782663A

PATIENT
  Sex: Male

DRUGS (2)
  1. CALQUENCE [Suspect]
     Active Substance: ACALABRUTINIB
     Indication: Chronic lymphocytic leukaemia
  2. CALQUENCE [Suspect]
     Active Substance: ACALABRUTINIB

REACTIONS (3)
  - Bladder cancer [Recovered/Resolved]
  - Haemorrhage urinary tract [Recovered/Resolved]
  - Urinary tract infection [Recovered/Resolved]
